FAERS Safety Report 4978785-5 (Version None)
Quarter: 2006Q2

REPORT INFORMATION
  Report Type: 
  Country: None (occurrence: None)
  Receive Date: 20060417
  Receipt Date: 20060411
  Transmission Date: 20061013
  Serious: Yes (Hospitalization)
  Sender: FDA-Public Use
  Company Number: S05-FRA-03476-01

PATIENT
  Age: 79 Year
  Sex: Male

DRUGS (5)
  1. CITALOPRAM HYDROBROMIDE [Suspect]
     Dosage: 0.5 ML QD
     Dates: end: 20050618
  2. OXAZEPAM [Suspect]
     Dosage: 3 UNITS QD PO
     Route: 048
     Dates: end: 20050618
  3. RISPERDAL [Suspect]
     Dosage: 1 UNITS QD POO
     Route: 048
     Dates: end: 20050618
  4. MYOLASTAN (TETRAZEPAM) [Suspect]
     Dosage: 1 UNITS QD PO
     Route: 048
     Dates: end: 20050706
  5. MORPHINE SULFATE [Suspect]
     Dosage: 2 UNITS

REACTIONS (3)
  - BRONCHITIS [None]
  - DIABETES MELLITUS [None]
  - DIABETIC HYPEROSMOLAR COMA [None]
